FAERS Safety Report 6046840-7 (Version None)
Quarter: 2009Q1

REPORT INFORMATION
  Report Type: 
  Country: None (occurrence: None)
  Receive Date: 20090122
  Receipt Date: 20090116
  Transmission Date: 20090719
  Serious: Yes (Hospitalization)
  Sender: FDA-Public Use
  Company Number: A0764358A

PATIENT
  Age: 44 Year
  Sex: Male
  Weight: 115.9 kg

DRUGS (3)
  1. AVANDIA [Suspect]
     Dosage: 4MG TWICE PER DAY
     Route: 048
     Dates: start: 20040701, end: 20070713
  2. ZOCOR [Concomitant]
  3. ZIAC [Concomitant]

REACTIONS (1)
  - CEREBROVASCULAR ACCIDENT [None]
